FAERS Safety Report 7084315-7 (Version None)
Quarter: 2010Q4

REPORT INFORMATION
  Report Type: 
  Country: None (occurrence: None)
  Receive Date: 20101104
  Receipt Date: 20101029
  Transmission Date: 20110411
  Serious: Yes (Other)
  Sender: FDA-Public Use
  Company Number: JP-PFIZER INC-2010133600

PATIENT
  Age: 68 Year
  Sex: Male

DRUGS (1)
  1. NORVASC [Suspect]
     Indication: HYPERTENSION
     Dosage: 5MG/DAY
     Route: 048
     Dates: start: 20020101

REACTIONS (1)
  - PHOTOSENSITIVITY REACTION [None]
